FAERS Safety Report 5936542-7 (Version None)
Quarter: 2008Q4

REPORT INFORMATION
  Report Type: 
  Country: None (occurrence: None)
  Receive Date: 20081030
  Receipt Date: 20081022
  Transmission Date: 20090506
  Serious: No
  Sender: FDA-Public Use
  Company Number: US-B.I. PHARMACEUTICALS,INC./RIDGEFIELD-2006-BP-14967BP

PATIENT
  Sex: Male
  Weight: 104 kg

DRUGS (9)
  1. MIRAPEX [Suspect]
     Indication: PARKINSON'S DISEASE
     Route: 048
     Dates: start: 20000601, end: 20061001
  2. AMANTADINE HCL [Concomitant]
     Indication: PARKINSON'S DISEASE
  3. SINEMET [Concomitant]
     Indication: PARKINSON'S DISEASE
  4. PAXIL [Concomitant]
     Indication: PARKINSON'S DISEASE
  5. SYMMETREL [Concomitant]
     Indication: PARKINSON'S DISEASE
  6. DOXYCYCLINE [Concomitant]
     Indication: PROSTATOMEGALY
  7. WELLBUTRIN [Concomitant]
     Indication: NEPHROLITHIASIS
  8. HYDROCORTISONE [Concomitant]
     Indication: NEPHROLITHIASIS
  9. ELDEPRYL [Concomitant]

REACTIONS (9)
  - ANHEDONIA [None]
  - ANXIETY [None]
  - ECONOMIC PROBLEM [None]
  - EMOTIONAL DISTRESS [None]
  - FEAR [None]
  - INJURY [None]
  - OBSESSIVE-COMPULSIVE DISORDER [None]
  - PAIN [None]
  - PATHOLOGICAL GAMBLING [None]
